FAERS Safety Report 7811268-3 (Version None)
Quarter: 2011Q4

REPORT INFORMATION
  Report Type: 
  Country: None (occurrence: None)
  Receive Date: 20111011
  Receipt Date: 20111005
  Transmission Date: 20120403
  Serious: Yes (Hospitalization)
  Sender: FDA-Public Use
  Company Number: 1000023899

PATIENT
  Age: 78 Year
  Sex: Female
  Weight: 87.09 kg

DRUGS (5)
  1. VENTOLIN HFA (SALBUTAMOL SULFATE) (INHALANT) (SALBUTAMOL SULFATE) [Concomitant]
  2. SYMBICORT (BUDESONIDE W/FORMOTEROL FUMARATE) (INHALANT) (BUDESONIDE W/ [Concomitant]
  3. SPIRIVA (TIOTROPIUM BROMIDE) (INHALANT) (TIOTROPIUM) [Concomitant]
  4. DALIRESP [Suspect]
     Indication: CHRONIC OBSTRUCTIVE PULMONARY DISEASE
     Dosage: 500 MCG (500 MCG, 1 IN 1 D), ORAL
     Route: 048
     Dates: start: 20110913, end: 20110914
  5. OXYGEN (OXYGEN) (OXYGEN) [Concomitant]

REACTIONS (2)
  - HALLUCINATION, VISUAL [None]
  - CEREBRAL ATROPHY [None]
